FAERS Safety Report 4770909-8 (Version None)
Quarter: 2005Q3

REPORT INFORMATION
  Report Type: 
  Country: None (occurrence: None)
  Receive Date: 20050914
  Receipt Date: 20050830
  Transmission Date: 20060218
  Serious: Yes (Hospitalization)
  Sender: FDA-Public Use
  Company Number: 2005-0008098

PATIENT
  Age: 3 Month
  Sex: Female

DRUGS (5)
  1. VIREAD [Suspect]
     Dosage: TRANSPLACENTAL
     Route: 064
  2. EPIVIR [Suspect]
     Dosage: TRANSPLACENTAL
     Route: 064
  3. NORVIR [Suspect]
     Dosage: TRANSPLACENTAL
     Route: 064
  4. AGENERASE [Suspect]
     Dosage: TRANSPLACENTAL
     Route: 064
  5. RETROVIR [Suspect]
     Dosage: INTRAVENOUS (NOT OTHERWISE SPECIFIED)
     Route: 042
     Dates: start: 20041031, end: 20041031

REACTIONS (9)
  - BLOOD CREATINE PHOSPHOKINASE INCREASED [None]
  - BLOOD LACTIC ACID INCREASED [None]
  - CSF PROTEIN INCREASED [None]
  - DRUG EXPOSURE DURING PREGNANCY [None]
  - DYSKINESIA [None]
  - EYE DISORDER [None]
  - EYE MOVEMENT DISORDER [None]
  - LACRIMATION DECREASED [None]
  - NYSTAGMUS [None]
